FAERS Safety Report 4720839-2 (Version None)
Quarter: 2005Q3

REPORT INFORMATION
  Report Type: 
  Country: None (occurrence: None)
  Receive Date: 20050721
  Receipt Date: 20050708
  Transmission Date: 20060218
  Serious: Yes (Death)
  Sender: FDA-Public Use
  Company Number: MK200507-0086-1

PATIENT
  Age: 40 Year
  Sex: Male

DRUGS (6)
  1. METHADOSE [Suspect]
     Indication: PAIN
     Dosage: 400 MG QD, PO
     Route: 048
     Dates: start: 19980101, end: 20050101
  2. LIDOCAINE 2% [Suspect]
     Indication: DENTAL TREATMENT
  3. PAROXEITNE [Concomitant]
  4. VENLAFAXINE [Concomitant]
  5. MIRTAZAPINE [Concomitant]
  6. DOXEPIN HCL [Concomitant]

REACTIONS (5)
  - ANAPHYLACTIC SHOCK [None]
  - CARDIOMEGALY [None]
  - CYANOSIS [None]
  - DRUG TOXICITY [None]
  - DYSPNOEA [None]
